FAERS Safety Report 7200961-1 (Version None)
Quarter: 2010Q4

REPORT INFORMATION
  Report Type: 
  Country: None (occurrence: None)
  Receive Date: 20101228
  Receipt Date: 20101221
  Transmission Date: 20110411
  Serious: Yes (Other)
  Sender: FDA-Public Use
  Company Number: GB-PFIZER INC-2007337064

PATIENT
  Age: 27 Year
  Sex: Male

DRUGS (12)
  1. VENLAFAXINE HCL [Suspect]
     Dosage: UNK
     Dates: start: 20021201, end: 20030101
  2. IBUPROFEN [Suspect]
     Dosage: UNSPECIFIED
     Route: 065
     Dates: start: 20020820, end: 20020820
  3. ACETYLSALICYLIC ACID [Suspect]
  4. CODEINE [Suspect]
     Dosage: UNSPECIFIED
     Route: 065
     Dates: start: 20020820
  5. LOFEPRAMINE [Suspect]
     Dosage: UNSPECIFIED
     Route: 065
  6. IBUPROFEN [Suspect]
     Dosage: UNSPECIFIED
     Route: 065
     Dates: start: 20020820
  7. SEROXAT ^SMITH KLINE BEECHAM^ [Suspect]
     Indication: PHOBIA
     Dosage: 20 MG, 1X/DAY
     Dates: start: 19990901, end: 20021201
  8. METHAMPHETAMINE HYDROCHLORIDE [Concomitant]
     Dosage: UNSPECIFIED
     Route: 065
  9. COCAINE [Concomitant]
  10. FLUOXETINE [Concomitant]
     Indication: DEPRESSION
     Dosage: UNSPECIFIED
     Route: 065
  11. LITHIUM [Concomitant]
     Dosage: UNSPECIFIED
     Route: 065
  12. ETHANOL [Concomitant]
     Dosage: 2 CANS OF LAGER

REACTIONS (11)
  - AGGRESSION [None]
  - CONSTIPATION [None]
  - DEPRESSION [None]
  - DRUG WITHDRAWAL SYNDROME [None]
  - DRY MOUTH [None]
  - OVERDOSE [None]
  - SEXUAL DYSFUNCTION [None]
  - SOCIAL PHOBIA [None]
  - SUICIDAL IDEATION [None]
  - SUICIDE ATTEMPT [None]
  - VISION BLURRED [None]
